FAERS Safety Report 5971720-2 (Version None)
Quarter: 2008Q4

REPORT INFORMATION
  Report Type: 
  Country: None (occurrence: None)
  Receive Date: 20081201
  Receipt Date: 20081124
  Transmission Date: 20090506
  Serious: Yes (Hospitalization)
  Sender: FDA-Public Use
  Company Number: GB-JNJFOC-20081105434

PATIENT
  Age: 44 Year
  Sex: Male
  Weight: 101 kg

DRUGS (6)
  1. RISPERDAL CONSTA [Suspect]
     Indication: SCHIZOPHRENIA, PARANOID TYPE
     Route: 030
  2. RISPERDAL [Suspect]
     Route: 048
  3. RISPERDAL [Suspect]
     Indication: SCHIZOPHRENIA, PARANOID TYPE
     Route: 048
  4. LACTULOSE [Concomitant]
     Route: 065
  5. DICLOFENAC SODIUM [Concomitant]
     Route: 065
  6. IBUPROFEN TABLETS [Concomitant]
     Route: 048

REACTIONS (5)
  - AGGRESSION [None]
  - AGITATION [None]
  - DISTURBANCE IN SOCIAL BEHAVIOUR [None]
  - PSYCHOTIC DISORDER [None]
  - SEDATION [None]
